FAERS Safety Report 8411086-1 (Version None)
Quarter: 2012Q2

REPORT INFORMATION
  Report Type: 
  Country: None (occurrence: None)
  Receive Date: 20120605
  Receipt Date: 20120503
  Transmission Date: 20120825
  Serious: No
  Sender: FDA-Public Use
  Company Number: US-AMGEN-USASP2012028079

PATIENT
  Age: 60 Year
  Sex: Male

DRUGS (1)
  1. ENBREL [Suspect]
     Indication: PSORIASIS
     Dosage: 50 MG, QWK
     Dates: start: 20061108

REACTIONS (5)
  - LACERATION [None]
  - PSORIASIS [None]
  - SELF INJURIOUS BEHAVIOUR [None]
  - INJECTION SITE INJURY [None]
  - IMPAIRED HEALING [None]
